FAERS Safety Report 11074160 (Version 2)
Quarter: 2015Q2

REPORT INFORMATION
  Report Type: Spontaneous
  Country: US (occurrence: None)
  Receive Date: 20150427
  Receipt Date: 20150430
  Transmission Date: 20150821
  Serious: Yes (Death, Other)
  Sender: FDA-Public Use
  Company Number: ADR-2015-00791

PATIENT
  Age: 63 Year
  Sex: Female

DRUGS (3)
  1. COMPOUNDED BACLOFEN INTRATHECAL 1000MCG/ML [Suspect]
     Active Substance: BACLOFEN
     Indication: MUSCLE SPASTICITY
  2. METHADONE [Suspect]
     Active Substance: METHADONE HYDROCHLORIDE
  3. OTHER STRONGER MEDICINES (UNSPECIFIED) [Concomitant]

REACTIONS (3)
  - Rheumatoid arthritis [None]
  - Periarthritis [None]
  - Fracture [None]

NARRATIVE: CASE EVENT DATE: 20150224
